FAERS Safety Report 9173391 (Version 2)
Quarter: 2013Q1

REPORT INFORMATION
  Report Type: Spontaneous
  Country: CA (occurrence: None)
  Receive Date: 20130314
  Receipt Date: 20130319
  Transmission Date: 20140127
  Serious: Yes (Other)
  Sender: FDA-Public Use
  Company Number: 1623312

PATIENT
  Age: 73 Year
  Sex: Male

DRUGS (5)
  1. FENTANYL CITRATE [Suspect]
     Indication: ABDOMINAL OPERATION
     Dosage: 2UG/ML, CONTINUOUS, UNK, EPIDURAL
     Route: 008
  2. FENTANYL CITRATE [Suspect]
     Indication: POST PROCEDURAL COMPLICATION
     Dosage: 2UG/ML, CONTINUOUS, UNK, EPIDURAL
     Route: 008
  3. FENTANYL CITRATE [Suspect]
     Indication: ABDOMINAL OPERATION
     Dosage: 2UG/ML, CONTINUOUS, UNK, EPIDURAL
     Route: 008
  4. FENTANYL CITRATE [Suspect]
     Indication: POST PROCEDURAL COMPLICATION
     Dosage: 2UG/ML, CONTINUOUS, UNK, EPIDURAL
     Route: 008
  5. BUPIVACAINE HCL [Suspect]
     Dosage: 0.1% IN 250CC EPIDURAL
     Route: 008

REACTIONS (4)
  - Paraesthesia [None]
  - Blood pressure decreased [None]
  - Device computer issue [None]
  - Medication error [None]
